FAERS Safety Report 17293662 (Version 1)
Quarter: 2020Q1

REPORT INFORMATION
  Report Type: Spontaneous
  Country: US (occurrence: US)
  Receive Date: 20200120
  Receipt Date: 20200120
  Transmission Date: 20200409
  Serious: Yes (Disabling)
  Sender: FDA-Public Use
  Company Number: None

PATIENT
  Age: 42 Year
  Sex: Female
  Weight: 80.1 kg

DRUGS (1)
  1. CIPRO [Suspect]
     Active Substance: CIPROFLOXACIN HYDROCHLORIDE
     Indication: RENAL PAIN
     Route: 048
     Dates: start: 20190909, end: 20190910

REACTIONS (6)
  - Arthropathy [None]
  - Gait inability [None]
  - Tendon pain [None]
  - Paraesthesia [None]
  - Hypoaesthesia [None]
  - Tinnitus [None]

NARRATIVE: CASE EVENT DATE: 20190909
